FAERS Safety Report 4766261-4 (Version None)
Quarter: 2005Q3

REPORT INFORMATION
  Report Type: 
  Country: None (occurrence: None)
  Receive Date: 20050912
  Receipt Date: 20050902
  Transmission Date: 20060218
  Serious: Yes (Other)
  Sender: FDA-Public Use
  Company Number: PHEH2005US09872

PATIENT
  Sex: Female

DRUGS (2)
  1. ZOMETA [Suspect]
     Indication: MULTIPLE MYELOMA
     Dosage: 4MG UNK
     Dates: end: 20040901
  2. AREDIA [Suspect]
     Indication: MULTIPLE MYELOMA
     Dosage: 90MG UNK

REACTIONS (3)
  - ASEPTIC NECROSIS BONE [None]
  - IMPAIRED HEALING [None]
  - TOOTH EXTRACTION [None]
